FAERS Safety Report 9748836 (Version 2)
Quarter: 2013Q4

REPORT INFORMATION
  Report Type: Spontaneous
  Country: US (occurrence: US)
  Receive Date: 20131212
  Receipt Date: 20131212
  Transmission Date: 20140711
  Serious: Yes (Other)
  Sender: FDA-Public Use
  Company Number: US-INCYTE CORPORATION-2013IN001324

PATIENT
  Age: 76 Year
  Sex: Male
  Weight: 102.5 kg

DRUGS (14)
  1. JAKAFI [Suspect]
     Indication: MYELOFIBROSIS
     Dosage: 15 MG, BID
     Route: 048
     Dates: start: 20130522, end: 20130603
  2. JAKAFI [Suspect]
     Dosage: 10 MG, BID
     Route: 048
     Dates: start: 20130603, end: 20130708
  3. HUMALOG [Concomitant]
  4. PREDNISONE [Concomitant]
  5. ROPINIROLE [Concomitant]
  6. LASIX [Concomitant]
  7. LANTUS [Concomitant]
  8. BUMETANIDE [Concomitant]
  9. FINASTERIDE [Concomitant]
  10. CELEXA [Concomitant]
  11. ISOSORBIDE [Concomitant]
  12. METOPROLOL [Concomitant]
  13. PROGRAF [Concomitant]
  14. ASPIRIN [Concomitant]
     Dosage: 81 MG

REACTIONS (3)
  - Haemoglobin decreased [Unknown]
  - Thrombocytopenia [Recovering/Resolving]
  - Somnolence [Unknown]
